FAERS Safety Report 7298642-1 (Version None)
Quarter: 2011Q1

REPORT INFORMATION
  Report Type: 
  Country: None (occurrence: None)
  Receive Date: 20110217
  Receipt Date: 20110210
  Transmission Date: 20110831
  Serious: Yes (Other)
  Sender: FDA-Public Use
  Company Number: US-US-EMD SERONO, INC.-7021609

PATIENT
  Sex: Female

DRUGS (5)
  1. REBIF [Suspect]
     Route: 058
     Dates: start: 20100101
  2. REBIF [Suspect]
     Route: 058
     Dates: start: 20100101, end: 20100101
  3. REBIF [Suspect]
     Indication: MULTIPLE SCLEROSIS
     Route: 058
     Dates: start: 20091111, end: 20100101
  4. MULTI-VITAMINS [Concomitant]
     Indication: SUPPLEMENTATION THERAPY
  5. PREVACID [Concomitant]
     Indication: GASTROOESOPHAGEAL REFLUX DISEASE

REACTIONS (6)
  - HEPATOCELLULAR INJURY [None]
  - URINARY TRACT INFECTION [None]
  - HYPERTENSION [None]
  - INJECTION SITE HAEMATOMA [None]
  - MIGRAINE [None]
  - INJECTION SITE ERYTHEMA [None]
